FAERS Safety Report 8077477-6 (Version None)
Quarter: 2012Q1

REPORT INFORMATION
  Report Type: 
  Country: None (occurrence: None)
  Receive Date: 20120127
  Receipt Date: 20101115
  Transmission Date: 20120608
  Serious: No
  Sender: FDA-Public Use
  Company Number: US-ABBOTT-10P-163-0683096-00

PATIENT
  Age: 44 Year
  Sex: Female

DRUGS (14)
  1. HUMIRA [Suspect]
     Dates: start: 20101111, end: 20101111
  2. RESOTRIL [Concomitant]
     Indication: INSOMNIA
  3. COMPAZINE [Concomitant]
     Indication: VOMITING
  4. COMPAZINE [Concomitant]
     Indication: NAUSEA
  5. HUMIRA [Suspect]
     Indication: CROHN'S DISEASE
     Dates: start: 20101021, end: 20101021
  6. NEURONTIN [Concomitant]
     Indication: PAIN
  7. PRILOSEC [Concomitant]
     Indication: PRODUCT USED FOR UNKNOWN INDICATION
  8. KLONOPIN [Concomitant]
     Indication: ANXIETY
  9. TRAMADOL HCL [Concomitant]
     Indication: PAIN
     Dosage: ONE TABLET 2-3 TIMES DAILY
  10. PERCOCET [Concomitant]
     Indication: PAIN
     Dosage: 10MG/325MG
  11. VISTARIL [Concomitant]
     Indication: ANXIETY
  12. PROZAC [Concomitant]
     Indication: DEPRESSION
  13. HUMIRA [Suspect]
  14. ZANAFLEX [Concomitant]
     Indication: BACK PAIN

REACTIONS (5)
  - DIZZINESS [None]
  - PAIN [None]
  - DYSPNOEA [None]
  - ASTHENIA [None]
  - DRUG HYPERSENSITIVITY [None]
